FAERS Safety Report 7919317-9 (Version None)
Quarter: 2011Q4

REPORT INFORMATION
  Report Type: 
  Country: None (occurrence: None)
  Receive Date: 20111116
  Receipt Date: 20111116
  Transmission Date: 20120403
  Serious: Yes (Hospitalization)
  Sender: FDA-Public Use
  Company Number: None

PATIENT
  Sex: Female
  Weight: 45 kg

DRUGS (3)
  1. DOXORUBICIN HCL [Suspect]
     Dosage: 64 MG
  2. TAXOL [Suspect]
     Dosage: 129 MG
  3. CISPLATIN [Suspect]
     Dosage: 72 MG

REACTIONS (4)
  - ABDOMINAL PAIN [None]
  - CONSTIPATION [None]
  - VOMITING [None]
  - NAUSEA [None]
